FAERS Safety Report 6282545-5 (Version None)
Quarter: 2009Q3

REPORT INFORMATION
  Report Type: 
  Country: None (occurrence: None)
  Receive Date: 20090722
  Receipt Date: 20090717
  Transmission Date: 20100115
  Serious: Yes (Life-Threatening)
  Sender: FDA-Public Use
  Company Number: TCI2009A02783

PATIENT
  Age: 84 Year
  Sex: Male

DRUGS (12)
  1. LANSOPRAZOLE [Suspect]
     Dosage: 15 MG (15 MG, 1 IN 1 D) PER ORAL
     Route: 048
     Dates: start: 20061218
  2. ACTOS [Suspect]
     Dosage: 30 MG (30 MG, 1 IN 1 D) PER ORAL
     Route: 048
     Dates: start: 20080922
  3. BASEN (VOGLIBOSE) [Suspect]
     Dosage: 0.3 MG (0.3 MG, 1 IN 1 D) PER ORAL
     Route: 048
     Dates: start: 20070730
  4. DILTIAZEM HYDROCHLORIDE [Suspect]
     Indication: BLOOD PRESSURE INADEQUATELY CONTROLLED
     Dosage: 100 MG (100 MG, 1 IN 1 D) PER ORAL
     Route: 048
     Dates: start: 20090406, end: 20090408
  5. OLMESARTAN MEDOXOMIL [Suspect]
     Dosage: 40 MG (40 MG, 1 IN 1 D) PER ORAL
     Route: 048
     Dates: start: 20061218
  6. CALBLOCK (AZELNIDIPINE) [Suspect]
     Dosage: 16 MG (16 MG, 1 IN 1 D) PER ORAL
     Route: 048
     Dates: start: 20061218
  7. AMARYL [Suspect]
     Dosage: 4 MG (4 MG, 1 IN 1 D) PER ORAL
     Route: 048
     Dates: start: 20061218
  8. ATELEC (CLINIDIPINE) [Suspect]
     Dosage: 20 MG (20 MG, 1 IN 1 D) PER ORAL
     Route: 048
     Dates: start: 20070115
  9. CARVEDILOL [Suspect]
     Dosage: 30 MG (30 MG, 1 IN 1 D); 20 MG (20 MG, 1 IN 1 D) PER ORAL
     Route: 048
     Dates: start: 20080922, end: 20090408
  10. CARVEDILOL [Suspect]
     Dosage: 30 MG (30 MG, 1 IN 1 D); 20 MG (20 MG, 1 IN 1 D) PER ORAL
     Route: 048
     Dates: start: 20080512
  11. INDAPAMIDE [Suspect]
     Dosage: 4 MG (4 MG, 1 IN 1 D) PER ORAL
     Route: 048
     Dates: start: 20081208
  12. IRRIBOW (RAMOSETRON HYDROCHLORIDE) [Suspect]
     Dosage: 5 MCG (5 MCG, 1 IN 1 D) PER ORAL
     Route: 048
     Dates: start: 20090216

REACTIONS (9)
  - BLOOD PRESSURE DECREASED [None]
  - BRADYCARDIA [None]
  - BUNDLE BRANCH BLOCK RIGHT [None]
  - CARDIAC DISORDER [None]
  - CHEST PAIN [None]
  - DEPRESSED LEVEL OF CONSCIOUSNESS [None]
  - DIZZINESS [None]
  - HAEMODYNAMIC INSTABILITY [None]
  - HYPERKALAEMIA [None]
